FAERS Safety Report 25250823 (Version 1)
Quarter: 2025Q2

REPORT INFORMATION
  Report Type: Spontaneous
  Country: US (occurrence: US)
  Receive Date: 20250429
  Receipt Date: 20250429
  Transmission Date: 20250716
  Serious: Yes (Other)
  Sender: PFIZER
  Company Number: US-PFIZER INC-202500088651

PATIENT
  Age: 65 Year
  Sex: Male

DRUGS (1)
  1. INLYTA [Suspect]
     Active Substance: AXITINIB
     Dosage: 5 MG TABLET - 1 TABLET EVERY 12 HOURS BY MOUTH
     Route: 048
     Dates: start: 20250115

REACTIONS (2)
  - Weight decreased [Unknown]
  - Taste disorder [Recovering/Resolving]
